FAERS Safety Report 13452602 (Version 1)
Quarter: 2017Q2

REPORT INFORMATION
  Report Type: Spontaneous
  Country: TR (occurrence: TR)
  Receive Date: 20170418
  Receipt Date: 20170418
  Transmission Date: 20170830
  Serious: Yes (Other)
  Sender: FDA-Public Use
  Company Number: TR-TEVA-760971ISR

PATIENT
  Sex: Male
  Weight: 72 kg

DRUGS (9)
  1. HELIPAC TREATMENT PACKAGE (AMOXICILLIN\CLARITHROMYCIN\LANSOPRAZOLE) [Suspect]
     Active Substance: AMOXICILLIN\CLARITHROMYCIN\LANSOPRAZOLE
     Route: 048
     Dates: start: 20170321, end: 20170326
  2. HELIPAC TREATMENT PACKAGE (AMOXICILLIN\CLARITHROMYCIN\LANSOPRAZOLE) [Suspect]
     Active Substance: AMOXICILLIN\CLARITHROMYCIN\LANSOPRAZOLE
     Route: 048
     Dates: start: 20170321, end: 20170326
  3. HELIPAC TREATMENT PACKAGE (AMOXICILLIN\CLARITHROMYCIN\LANSOPRAZOLE) [Suspect]
     Active Substance: AMOXICILLIN\CLARITHROMYCIN\LANSOPRAZOLE
     Indication: HELICOBACTER INFECTION
     Route: 048
     Dates: start: 20170321, end: 20170326
  4. HELIPAC TREATMENT PACKAGE (AMOXICILLIN\CLARITHROMYCIN\LANSOPRAZOLE) [Suspect]
     Active Substance: AMOXICILLIN\CLARITHROMYCIN\LANSOPRAZOLE
     Indication: HELICOBACTER INFECTION
     Route: 048
     Dates: start: 20170321, end: 20170326
  5. HELIPAC TREATMENT PACKAGE (AMOXICILLIN\CLARITHROMYCIN\LANSOPRAZOLE) [Suspect]
     Active Substance: AMOXICILLIN\CLARITHROMYCIN\LANSOPRAZOLE
     Route: 048
     Dates: start: 20170321, end: 20170326
  6. HELIPAC TREATMENT PACKAGE (AMOXICILLIN\CLARITHROMYCIN\LANSOPRAZOLE) [Suspect]
     Active Substance: AMOXICILLIN\CLARITHROMYCIN\LANSOPRAZOLE
     Indication: HELICOBACTER INFECTION
     Route: 048
     Dates: start: 20170321, end: 20170326
  7. HELIPAC TREATMENT PACKAGE (AMOXICILLIN\CLARITHROMYCIN\LANSOPRAZOLE) [Suspect]
     Active Substance: AMOXICILLIN\CLARITHROMYCIN\LANSOPRAZOLE
     Route: 048
     Dates: start: 20170321, end: 20170326
  8. HELIPAC TREATMENT PACKAGE (AMOXICILLIN\CLARITHROMYCIN\LANSOPRAZOLE) [Suspect]
     Active Substance: AMOXICILLIN\CLARITHROMYCIN\LANSOPRAZOLE
     Route: 048
     Dates: start: 20170321, end: 20170326
  9. HELIPAC TREATMENT PACKAGE (AMOXICILLIN\CLARITHROMYCIN\LANSOPRAZOLE) [Suspect]
     Active Substance: AMOXICILLIN\CLARITHROMYCIN\LANSOPRAZOLE
     Route: 048
     Dates: start: 20170321, end: 20170326

REACTIONS (6)
  - Mouth ulceration [Not Recovered/Not Resolved]
  - Dry mouth [Not Recovered/Not Resolved]
  - Speech disorder [Not Recovered/Not Resolved]
  - Oral pain [Not Recovered/Not Resolved]
  - Tongue ulceration [Not Recovered/Not Resolved]
  - Dysphagia [Not Recovered/Not Resolved]
